FAERS Safety Report 12243689 (Version 3)
Quarter: 2017Q3

REPORT INFORMATION
  Report Type: Report from Study
  Country: US (occurrence: US)
  Receive Date: 20160406
  Receipt Date: 20170915
  Transmission Date: 20171127
  Serious: No
  Sender: FDA-Public Use
  Company Number: PHEH2016US008223

PATIENT
  Sex: Female

DRUGS (1)
  1. ILARIS [Suspect]
     Active Substance: CANAKINUMAB
     Indication: PRODUCT USED FOR UNKNOWN INDICATION
     Route: 058

REACTIONS (4)
  - Influenza [Unknown]
  - Chills [Unknown]
  - Sinusitis [Unknown]
  - Inappropriate schedule of drug administration [Unknown]
